FAERS Safety Report 15417019 (Version 1)
Quarter: 2018Q3

REPORT INFORMATION
  Report Type: Spontaneous
  Country: US (occurrence: US)
  Receive Date: 20180917
  Receipt Date: 20180917
  Transmission Date: 20181010
  Serious: Yes (Death)
  Sender: FDA-Public Use
  Company Number: None

PATIENT
  Age: 72 Year
  Sex: Female

DRUGS (10)
  1. OMEPRAZOLE. [Concomitant]
     Active Substance: OMEPRAZOLE
  2. METOPOROL [Concomitant]
  3. CARTIA [Concomitant]
  4. GABAPENTIN. [Concomitant]
     Active Substance: GABAPENTIN
  5. GLYBURIDE. [Concomitant]
     Active Substance: GLYBURIDE
  6. POT CHLORIDE [Concomitant]
     Active Substance: POTASSIUM CHLORIDE
  7. RANITIDINE. [Concomitant]
     Active Substance: RANITIDINE
  8. PEMTPXOFYLLI [Concomitant]
  9. METFORMIN [Concomitant]
     Active Substance: METFORMIN HYDROCHLORIDE
  10. CAPECITABINE 500 MG TAB [Suspect]
     Active Substance: CAPECITABINE
     Route: 048
     Dates: end: 2018

REACTIONS (1)
  - Disease progression [None]

NARRATIVE: CASE EVENT DATE: 20180720
